FAERS Safety Report 12859578 (Version 2)
Quarter: 2016Q4

REPORT INFORMATION
  Report Type: Spontaneous
  Country: CN (occurrence: CN)
  Receive Date: 20161018
  Receipt Date: 20161025
  Transmission Date: 20170207
  Serious: Yes (Other)
  Sender: FDA-Public Use
  Company Number: CN-BRACCO-002815

PATIENT
  Age: 85 Year
  Sex: Female

DRUGS (4)
  1. ALMAGATE [Concomitant]
     Active Substance: ALMAGATE
     Dosage: 1 PACK
     Route: 048
     Dates: start: 20150320
  2. NORMAL SALINE [Concomitant]
     Active Substance: SODIUM CHLORIDE
     Route: 041
     Dates: start: 20150320
  3. PANTOPRAZOLE [Concomitant]
     Active Substance: PANTOPRAZOLE SODIUM
     Route: 041
     Dates: start: 20150320
  4. IOPAMIRO [Suspect]
     Active Substance: IOPAMIDOL
     Indication: COMPUTERISED TOMOGRAM
     Route: 042
     Dates: start: 20150324, end: 20150324

REACTIONS (3)
  - Vomiting [Unknown]
  - Pyrexia [Unknown]
  - Epidermolysis bullosa [Recovered/Resolved]

NARRATIVE: CASE EVENT DATE: 20150324
